FAERS Safety Report 18822392 (Version 1)
Quarter: 2021Q1

REPORT INFORMATION
  Report Type: Other
  Country: VN (occurrence: VN)
  Receive Date: 20210202
  Receipt Date: 20210202
  Transmission Date: 20210419
  Serious: Yes (Other)
  Sender: FDA-Public Use
  Company Number: VN-ROCHE-2753935

PATIENT

DRUGS (1)
  1. CAPECITABINE. [Suspect]
     Active Substance: CAPECITABINE
     Indication: RECTAL CANCER
     Route: 065

REACTIONS (23)
  - Blood creatinine abnormal [Unknown]
  - Vomiting [Unknown]
  - Neutrophil count abnormal [Unknown]
  - Diarrhoea [Unknown]
  - Rectal ulcer [Unknown]
  - Stomatitis [Unknown]
  - Mucosal inflammation [Unknown]
  - Pain of skin [Unknown]
  - Off label use [Unknown]
  - Anal ulcer [Unknown]
  - White blood cell disorder [Unknown]
  - Palmar-plantar erythrodysaesthesia syndrome [Unknown]
  - Haemoglobin abnormal [Unknown]
  - Erythema [Unknown]
  - Cystitis noninfective [Unknown]
  - Skin ulcer [Unknown]
  - Intentional product use issue [Unknown]
  - Platelet disorder [Unknown]
  - Aspartate aminotransferase abnormal [Unknown]
  - Alanine aminotransferase abnormal [Unknown]
  - Nausea [Unknown]
  - Vulvovaginal inflammation [Unknown]
  - Cystitis [Unknown]
